FAERS Safety Report 17216779 (Version 1)
Quarter: 2019Q4

REPORT INFORMATION
  Report Type: Report from Study
  Country: KR (occurrence: KR)
  Receive Date: 20191230
  Receipt Date: 20191230
  Transmission Date: 20200122
  Serious: Yes (Hospitalization)
  Sender: FDA-Public Use
  Company Number: KR-AMGEN-KORNI2019215425

PATIENT
  Age: 63 Year
  Sex: Female

DRUGS (15)
  1. PEGFILGRASTIM [Suspect]
     Active Substance: PEGFILGRASTIM
     Indication: BREAST CANCER
     Dosage: 6 MILLIGRAM 1
     Route: 058
     Dates: start: 20190710, end: 20190710
  2. PEGFILGRASTIM [Suspect]
     Active Substance: PEGFILGRASTIM
     Dosage: 6 MILLIGRAM 1
     Route: 058
     Dates: start: 20190731, end: 20190731
  3. PEGFILGRASTIM [Suspect]
     Active Substance: PEGFILGRASTIM
     Dosage: 6 MILLIGRAM 1
     Route: 058
     Dates: start: 20191002, end: 20191002
  4. DOXORUBICIN HYDROCHLORIDE. [Concomitant]
     Active Substance: DOXORUBICIN HYDROCHLORIDE
     Dosage: 91.2 MILLIGRAM, QD (SINGLE)
     Dates: start: 20190820, end: 20190820
  5. DOCETAXEL. [Concomitant]
     Active Substance: DOCETAXEL
     Dosage: 114 MILLIGRAM, QD (SINGLE)
     Dates: start: 20191001, end: 20191001
  6. PEGFILGRASTIM [Suspect]
     Active Substance: PEGFILGRASTIM
     Dosage: 6 MILLIGRAM 1
     Route: 058
     Dates: start: 20190911, end: 20190911
  7. PEGFILGRASTIM [Suspect]
     Active Substance: PEGFILGRASTIM
     Dosage: 6 MILLIGRAM 1
     Route: 065
     Dates: start: 20190821, end: 20190821
  8. CYCLOPHOSPHAMIDE. [Concomitant]
     Active Substance: CYCLOPHOSPHAMIDE
     Dosage: 912 MILLIGRAM, QD (SINGLE)
     Dates: start: 20190709, end: 20190709
  9. CYCLOPHOSPHAMIDE. [Concomitant]
     Active Substance: CYCLOPHOSPHAMIDE
     Dosage: 912 MILLIGRAM, QD (SINGLE)
     Dates: start: 20190820, end: 20190820
  10. CYCLOPHOSPHAMIDE. [Concomitant]
     Active Substance: CYCLOPHOSPHAMIDE
     Dosage: 912 MILLIGRAM, QD (SINGLE)
     Dates: start: 20190730, end: 20190730
  11. DOXORUBICIN HYDROCHLORIDE. [Concomitant]
     Active Substance: DOXORUBICIN HYDROCHLORIDE
     Dosage: 91.2 MILLIGRAM, QD (SINGLE)
     Dates: start: 20190730, end: 20190730
  12. CYCLOPHOSPHAMIDE. [Concomitant]
     Active Substance: CYCLOPHOSPHAMIDE
     Indication: BREAST CANCER
     Dosage: 912 MILLIGRAM, QD (SINGLE)
     Dates: start: 20190618, end: 20190618
  13. DOXORUBICIN HYDROCHLORIDE. [Concomitant]
     Active Substance: DOXORUBICIN HYDROCHLORIDE
     Indication: BREAST CANCER
     Dosage: 91.2 MILLIGRAM, QD (SINGLE)
     Dates: start: 20190618, end: 20190618
  14. DOXORUBICIN HYDROCHLORIDE. [Concomitant]
     Active Substance: DOXORUBICIN HYDROCHLORIDE
     Dosage: 91.2 MILLIGRAM, QD (SINGLE)
     Dates: start: 20190709, end: 20190709
  15. DOCETAXEL. [Concomitant]
     Active Substance: DOCETAXEL
     Indication: BREAST CANCER
     Dosage: 114 MILLIGRAM, QD (SINGLE)
     Dates: start: 20190910, end: 20190910

REACTIONS (3)
  - Urinary tract infection [Recovered/Resolved]
  - Blood pressure decreased [Recovered/Resolved]
  - Oedema peripheral [Recovered/Resolved]

NARRATIVE: CASE EVENT DATE: 2019
